FAERS Safety Report 25570465 (Version 3)
Quarter: 2025Q3

REPORT INFORMATION
  Report Type: Spontaneous
  Country: JP (occurrence: JP)
  Receive Date: 20250717
  Receipt Date: 20250910
  Transmission Date: 20251021
  Serious: Yes (Hospitalization, Other)
  Sender: BRISTOL-MYERS SQUIBB COMPANY
  Company Number: JP-BRISTOL-MYERS SQUIBB COMPANY-2025-099044

PATIENT
  Age: 62 Year
  Sex: Male
  Weight: 45 kg

DRUGS (4)
  1. YERVOY [Suspect]
     Active Substance: IPILIMUMAB
     Indication: Oesophageal carcinoma recurrent
     Dates: start: 20221125, end: 20230217
  2. YERVOY [Suspect]
     Active Substance: IPILIMUMAB
     Dates: start: 20230407, end: 20230519
  3. OPDIVO [Suspect]
     Active Substance: NIVOLUMAB
     Indication: Oesophageal carcinoma recurrent
     Dates: start: 20221125, end: 20230217
  4. OPDIVO [Suspect]
     Active Substance: NIVOLUMAB
     Dates: start: 20230407, end: 20230519

REACTIONS (1)
  - Liver disorder [Recovered/Resolved]

NARRATIVE: CASE EVENT DATE: 20230519
